FAERS Safety Report 6431184-1 (Version None)
Quarter: 2009Q4

REPORT INFORMATION
  Report Type: 
  Country: None (occurrence: None)
  Receive Date: 20091106
  Receipt Date: 20091031
  Transmission Date: 20100525
  Serious: Yes (Death, Other)
  Sender: FDA-Public Use
  Company Number: PT-CELGENEUS-130-21880-09110079

PATIENT

DRUGS (4)
  1. REVLIMID [Suspect]
     Route: 048
  2. DEXAMETHASONE [Concomitant]
     Route: 048
  3. INTERFERON ALFA [Concomitant]
     Indication: DRUG USE FOR UNKNOWN INDICATION
     Route: 065
  4. NEUPOGEN [Concomitant]

REACTIONS (5)
  - ASTHENIA [None]
  - DEATH [None]
  - DEEP VEIN THROMBOSIS [None]
  - HAEMATOTOXICITY [None]
  - NEUROPATHY PERIPHERAL [None]
